FAERS Safety Report 19397047 (Version 1)
Quarter: 2021Q2

REPORT INFORMATION
  Report Type: Spontaneous
  Country: US (occurrence: US)
  Receive Date: 20210610
  Receipt Date: 20210610
  Transmission Date: 20210717
  Serious: No
  Sender: FDA-Public Use
  Company Number: US-SA-2021SA192553

PATIENT
  Sex: Male

DRUGS (15)
  1. DOXYCYCLINE HYCLATE. [Concomitant]
     Active Substance: DOXYCYCLINE HYCLATE
  2. VIMPAT [Concomitant]
     Active Substance: LACOSAMIDE
  3. AMITIZA [Concomitant]
     Active Substance: LUBIPROSTONE
  4. PIMECROLIMUS. [Concomitant]
     Active Substance: PIMECROLIMUS
  5. TACROLIMUS. [Concomitant]
     Active Substance: TACROLIMUS
  6. CLOBETASOL [Concomitant]
     Active Substance: CLOBETASOL
  7. METOPROLOL SUCCINATE. [Concomitant]
     Active Substance: METOPROLOL SUCCINATE
  8. SINGULAIR [Concomitant]
     Active Substance: MONTELUKAST SODIUM
     Dosage: 200 MG
  9. VENTOLIN [Concomitant]
     Active Substance: ALBUTEROL SULFATE
  10. DUPIXENT [Suspect]
     Active Substance: DUPILUMAB
     Indication: DERMATITIS ATOPIC
     Dosage: 300 MG, QOW
     Route: 058
  11. DUPIXENT [Suspect]
     Active Substance: DUPILUMAB
     Indication: ILLNESS
  12. METOPROLOL SUCCINATE. [Concomitant]
     Active Substance: METOPROLOL SUCCINATE
  13. ONFI [Concomitant]
     Active Substance: CLOBAZAM
  14. PLAQUENIL [Concomitant]
     Active Substance: HYDROXYCHLOROQUINE SULFATE
  15. GABITRIL [Concomitant]
     Active Substance: TIAGABINE HYDROCHLORIDE

REACTIONS (5)
  - Pain [Unknown]
  - Pruritus [Unknown]
  - Product use in unapproved indication [Unknown]
  - Memory impairment [Unknown]
  - Rash macular [Unknown]
